FAERS Safety Report 6110874-4 (Version None)
Quarter: 2009Q1

REPORT INFORMATION
  Report Type: 
  Country: None (occurrence: None)
  Receive Date: 20090311
  Receipt Date: 20090303
  Transmission Date: 20090719
  Serious: Yes (Hospitalization, Other)
  Sender: FDA-Public Use
  Company Number: US-ASTRAZENECA-2009UW04519

PATIENT
  Age: 17040 Day
  Sex: Female
  Weight: 127 kg

DRUGS (2)
  1. PRILOSEC OTC [Suspect]
     Indication: DYSPEPSIA
     Route: 048
     Dates: start: 20090212, end: 20090212
  2. PEPTO-BISMOL [Concomitant]
     Indication: DYSPEPSIA
     Dosage: 2 TABLESPOONS DAILY

REACTIONS (1)
  - ANAPHYLACTIC SHOCK [None]
